FAERS Safety Report 4967366-5 (Version None)
Quarter: 2006Q2

REPORT INFORMATION
  Report Type: 
  Country: None (occurrence: None)
  Receive Date: 20060410
  Receipt Date: 20060407
  Transmission Date: 20061013
  Serious: Yes (Life-Threatening, Hospitalization)
  Sender: FDA-Public Use
  Company Number: PHBS2006ES05136

PATIENT
  Age: 35 Year
  Sex: Male

DRUGS (3)
  1. LUDIOMIL [Suspect]
     Indication: ANXIETY
     Dosage: 26 MG, BIW
     Route: 048
     Dates: end: 20051018
  2. FROSINOR [Suspect]
     Indication: PHOBIA
     Dosage: 20 MG/D
     Route: 048
     Dates: end: 20051018
  3. LEXATIN [Suspect]
     Dosage: 1.5 MG, PRN
     Route: 048
     Dates: end: 20051018

REACTIONS (4)
  - INTERSTITIAL LUNG DISEASE [None]
  - LUNG INFILTRATION [None]
  - PULMONARY FIBROSIS [None]
  - RESPIRATORY DEPRESSION [None]
